FAERS Safety Report 7295204-7 (Version None)
Quarter: 2011Q1

REPORT INFORMATION
  Report Type: 
  Country: None (occurrence: None)
  Receive Date: 20110216
  Receipt Date: 20101207
  Transmission Date: 20110831
  Serious: No
  Sender: FDA-Public Use
  Company Number: A0898370A

PATIENT
  Age: 69 Year
  Sex: Male

DRUGS (3)
  1. LOSARTAN POTASSIUM [Concomitant]
  2. VOTRIENT [Suspect]
     Dosage: 400MG PER DAY
     Route: 048
     Dates: start: 20101001
  3. AFINITOR [Concomitant]

REACTIONS (2)
  - PYREXIA [None]
  - TOOTH ABSCESS [None]
